FAERS Safety Report 6046890-0 (Version None)
Quarter: 2009Q1

REPORT INFORMATION
  Report Type: 
  Country: None (occurrence: None)
  Receive Date: 20090122
  Receipt Date: 20090116
  Transmission Date: 20090719
  Serious: Yes (Other)
  Sender: FDA-Public Use
  Company Number: B0554373A

PATIENT
  Age: 3 Year
  Sex: Male

DRUGS (1)
  1. AMOXICILLIN [Suspect]
     Dosage: 15ML PER DAY
     Route: 048
     Dates: start: 20081215, end: 20081218

REACTIONS (3)
  - BLEPHAROSPASM [None]
  - DARK CIRCLES UNDER EYES [None]
  - PALLOR [None]
